FAERS Safety Report 22291398 (Version 1)
Quarter: 2023Q2

REPORT INFORMATION
  Report Type: Report from Study
  Country: US (occurrence: US)
  Receive Date: 20230506
  Receipt Date: 20230506
  Transmission Date: 20230722
  Serious: No
  Sender: FDA-Public Use
  Company Number: US-002147023-NVSC2023US099959

PATIENT
  Sex: Female

DRUGS (2)
  1. TABRECTA [Suspect]
     Active Substance: CAPMATINIB
     Indication: Lung neoplasm malignant
     Dosage: 400 MG, BID
     Route: 048
     Dates: start: 202304
  2. TABRECTA [Suspect]
     Active Substance: CAPMATINIB
     Dosage: UNK, BID, (400MG IN MORNING AND 200MG AT NIGHT)
     Route: 065

REACTIONS (1)
  - Rash [Recovering/Resolving]
